FAERS Safety Report 9750651 (Version 1)
Quarter: 2013Q4

REPORT INFORMATION
  Report Type: Spontaneous
  Country: US (occurrence: US)
  Receive Date: 20131212
  Receipt Date: 20131212
  Transmission Date: 20140711
  Serious: No
  Sender: FDA-Public Use
  Company Number: US-BIOGENIDEC-2013BI099007

PATIENT
  Age: 78 Year
  Sex: Female

DRUGS (10)
  1. TECFIDERA [Suspect]
     Indication: MULTIPLE SCLEROSIS
     Route: 048
     Dates: start: 201309
  2. TECFIDERA [Suspect]
     Indication: MULTIPLE SCLEROSIS
     Route: 048
     Dates: start: 201309
  3. TYLENOL [Concomitant]
  4. FOLIC ACID [Concomitant]
  5. CALCIUM + VITAMIN D [Concomitant]
  6. ALEVE [Concomitant]
  7. CVS VITAMIN D [Concomitant]
  8. CVS VITAMIN E [Concomitant]
  9. CVS VITAMIN B-100 COMPLX TB [Concomitant]
  10. LEVOXYL [Concomitant]

REACTIONS (4)
  - Toothache [Recovered/Resolved]
  - Musculoskeletal disorder [Unknown]
  - Neuropathy peripheral [Unknown]
  - Flushing [Unknown]
